FAERS Safety Report 12689973 (Version 1)
Quarter: 2016Q3

REPORT INFORMATION
  Report Type: Spontaneous
  Country: US (occurrence: US)
  Receive Date: 20160826
  Receipt Date: 20160826
  Transmission Date: 20161109
  Serious: Yes (Other)
  Sender: FDA-Public Use
  Company Number: US-JNJFOC-20160817015

PATIENT

DRUGS (28)
  1. FEXOFENADINE [Concomitant]
     Active Substance: FEXOFENADINE\FEXOFENADINE HYDROCHLORIDE
  2. FINASTERIDE. [Concomitant]
     Active Substance: FINASTERIDE
  3. PREGABALIN. [Concomitant]
     Active Substance: PREGABALIN
  4. DARZALEX [Suspect]
     Active Substance: DARATUMUMAB
     Indication: PLASMA CELL MYELOMA
     Route: 042
  5. LEVOTHYROXINE. [Concomitant]
     Active Substance: LEVOTHYROXINE
  6. METHOCARBAMOL. [Concomitant]
     Active Substance: METHOCARBAMOL
  7. FLUCONAZOLE. [Concomitant]
     Active Substance: FLUCONAZOLE
  8. CITALOPRAM [Concomitant]
     Active Substance: CITALOPRAM HYDROBROMIDE
  9. LACTOBACILLUS ACIDOPHILUS [Concomitant]
     Active Substance: LACTOBACILLUS ACIDOPHILUS
  10. LEVOFLOXACIN. [Concomitant]
     Active Substance: LEVOFLOXACIN
  11. HYDROMORPHONE [Concomitant]
     Active Substance: HYDROMORPHONE
  12. DEXAMETHASONE. [Concomitant]
     Active Substance: DEXAMETHASONE
  13. FUROSEMIDE. [Concomitant]
     Active Substance: FUROSEMIDE
  14. TAMSULOSIN [Concomitant]
     Active Substance: TAMSULOSIN
  15. FENTANYL. [Concomitant]
     Active Substance: FENTANYL
  16. AMOXICILLIN. [Concomitant]
     Active Substance: AMOXICILLIN
     Indication: DENTAL CARE
  17. ALLOPURINOL. [Concomitant]
     Active Substance: ALLOPURINOL
  18. DAPSONE. [Concomitant]
     Active Substance: DAPSONE
  19. HYDROXYPROPYL METHYLCELLULOSE [Concomitant]
     Active Substance: HYPROMELLOSES
  20. TESTOSTERONE. [Concomitant]
     Active Substance: TESTOSTERONE
  21. BUDESONIDE. [Concomitant]
     Active Substance: BUDESONIDE
  22. ASPIRIN. [Concomitant]
     Active Substance: ASPIRIN
  23. LOPERAMIDE [Concomitant]
     Active Substance: LOPERAMIDE
  24. IPRATROPIUM BROMIDE. [Concomitant]
     Active Substance: IPRATROPIUM BROMIDE
  25. ALBUTEROL. [Concomitant]
     Active Substance: ALBUTEROL
     Route: 055
  26. KETOCONAZOLE. [Concomitant]
     Active Substance: KETOCONAZOLE
  27. THALIDOMIDE [Concomitant]
     Active Substance: THALIDOMIDE
  28. LORAZEPAM. [Concomitant]
     Active Substance: LORAZEPAM

REACTIONS (1)
  - Glycosylated haemoglobin decreased [Unknown]
